FAERS Safety Report 4433988-3 (Version None)
Quarter: 2004Q3

REPORT INFORMATION
  Report Type: 
  Country: None (occurrence: None)
  Receive Date: 20040825
  Receipt Date: 20040812
  Transmission Date: 20050211
  Serious: Yes (Death, Other)
  Sender: FDA-Public Use
  Company Number: 137851USA

PATIENT
  Age: 63 Year
  Sex: Male
  Weight: 43.5453 kg

DRUGS (2)
  1. PURINETHOL [Suspect]
     Indication: CROHN'S DISEASE
     Dosage: 75 MILLIGRAM QD ORAL
     Route: 048
     Dates: start: 19971101, end: 20020501
  2. ASACOL [Concomitant]

REACTIONS (3)
  - ACUTE MYELOID LEUKAEMIA [None]
  - LEUKAEMIA RECURRENT [None]
  - MYELODYSPLASTIC SYNDROME [None]
